APPROVED DRUG PRODUCT: MICONAZOLE NITRATE
Active Ingredient: MICONAZOLE NITRATE
Strength: 2%,1.2GM
Dosage Form/Route: CREAM, INSERT;TOPICAL, VAGINAL
Application: A079114 | Product #001
Applicant: PERRIGO R AND D CO
Approved: Jun 2, 2010 | RLD: No | RS: No | Type: OTC